FAERS Safety Report 9213304 (Version 4)
Quarter: 2013Q2

REPORT INFORMATION
  Report Type: Spontaneous
  Country: GB (occurrence: GB)
  Receive Date: 20130405
  Receipt Date: 20130524
  Transmission Date: 20140414
  Serious: Yes (Other)
  Sender: FDA-Public Use
  Company Number: PHFR2013GB002013

PATIENT
  Age: 57 Year
  Sex: Female

DRUGS (11)
  1. CLIMAVAL [Suspect]
     Indication: HORMONE REPLACEMENT THERAPY
     Dosage: 1 MG, QD
     Route: 048
     Dates: start: 20121026
  2. PROGYNOVA [Suspect]
  3. BENDROFLUMETHIAZIDE [Concomitant]
     Dosage: 2.5 MG, UNK
  4. LEVOTHYROXINE [Concomitant]
     Dosage: 100 MG, UNK
  5. LEVOTHYROXINE [Concomitant]
     Dosage: 25 MG, UNK
  6. LEVOTHYROXINE [Concomitant]
     Dosage: 100 UG, DAILY
     Route: 048
  7. CLOPIDOGREL [Concomitant]
     Dosage: 75 MG, UNK
  8. TRAMADOL [Concomitant]
     Dosage: 100 MG, UNK
  9. VENLAFAXINE [Concomitant]
     Dosage: 75 MG, UNK
  10. BUDESONIDE [Concomitant]
     Dosage: 1 OR 2 PUFFS (AM TO PM)
     Route: 048
     Dates: start: 20120314
  11. CARBOCISTEIN [Concomitant]
     Dosage: 375 MG, UNK
     Route: 048
     Dates: start: 20120928

REACTIONS (1)
  - Breast cyst [Unknown]
